FAERS Safety Report 24651921 (Version 1)
Quarter: 2024Q4

REPORT INFORMATION
  Report Type: Spontaneous
  Country: US (occurrence: US)
  Receive Date: 20241122
  Receipt Date: 20241122
  Transmission Date: 20250115
  Serious: Yes (Hospitalization)
  Sender: TORRENT PHARMA INC.
  Company Number: US-TORRENT-00013850

PATIENT
  Age: 7 Year
  Sex: Female

DRUGS (1)
  1. SIROLIMUS [Suspect]
     Active Substance: SIROLIMUS
     Indication: Mouth haemorrhage
     Dosage: FOR ONE MONTH
     Route: 048

REACTIONS (1)
  - Pharyngeal ulceration [Unknown]
